FAERS Safety Report 9934534 (Version 1)
Quarter: 2014Q1

REPORT INFORMATION
  Report Type: Spontaneous
  Country: FR (occurrence: FR)
  Receive Date: 20140228
  Receipt Date: 20140228
  Transmission Date: 20141002
  Serious: Yes (Hospitalization)
  Sender: FDA-Public Use
  Company Number: FR-UCBSA-113155

PATIENT
  Age: 30 Year
  Sex: Male

DRUGS (9)
  1. KEPPRA [Suspect]
     Dates: start: 20131213
  2. KEPPRA [Suspect]
     Dates: end: 20131211
  3. REMICADE [Suspect]
     Dosage: 100 MG
     Dates: start: 201306, end: 20131209
  4. DIFFU K [Concomitant]
     Dosage: 3 CAPSULES DAILY
  5. INEXIUM [Concomitant]
     Dosage: 40 MG
  6. COLCHICINE [Concomitant]
     Dosage: 1 MG
  7. CORTANCYL [Concomitant]
     Dosage: 65 MG
  8. PREVISCAN [Concomitant]
     Dosage: 75 MG
  9. CADIT D3 [Concomitant]

REACTIONS (1)
  - Neuropsychiatric syndrome [Not Recovered/Not Resolved]
